FAERS Safety Report 23711939 (Version 1)
Quarter: 2024Q2

REPORT INFORMATION
  Report Type: Spontaneous
  Country: US (occurrence: US)
  Receive Date: 20240405
  Receipt Date: 20240405
  Transmission Date: 20240716
  Serious: Yes (Other)
  Sender: FDA-Public Use
  Company Number: US-BIOCODEX2-2023001604

PATIENT
  Age: 18 Year
  Sex: Female
  Weight: 36.5 kg

DRUGS (4)
  1. DIACOMIT [Suspect]
     Active Substance: STIRIPENTOL
     Indication: Severe myoclonic epilepsy of infancy
     Dosage: TITRATING TO 500MG AND IS CURRENTLY TAKING 375MG TWICE A DAY
     Route: 048
     Dates: start: 20231204
  2. DIACOMIT [Suspect]
     Active Substance: STIRIPENTOL
     Indication: Severe myoclonic epilepsy of infancy
     Dosage: 500 MG BY MOUTH TWICE DAILY
     Route: 048
     Dates: start: 20231204
  3. DIACOMIT [Suspect]
     Active Substance: STIRIPENTOL
     Indication: Severe myoclonic epilepsy of infancy
     Dosage: 500 MG BY MOUTH TWICE DAILY
     Route: 048
     Dates: start: 20231204
  4. CLOBAZAM [Concomitant]
     Active Substance: CLOBAZAM
     Indication: Severe myoclonic epilepsy of infancy
     Dosage: IS BEING TAPERED DOWN
     Route: 065

REACTIONS (4)
  - Somnolence [Not Recovered/Not Resolved]
  - Decreased appetite [Not Recovered/Not Resolved]
  - Change in seizure presentation [Unknown]
  - Product preparation issue [Unknown]

NARRATIVE: CASE EVENT DATE: 20231201
